FAERS Safety Report 17492752 (Version 1)
Quarter: 2020Q1

REPORT INFORMATION
  Report Type: Report from Study
  Country: US (occurrence: US)
  Receive Date: 20200304
  Receipt Date: 20200304
  Transmission Date: 20200409
  Serious: Yes (Other)
  Sender: FDA-Public Use
  Company Number: US-ROCHE-2559169

PATIENT
  Age: 58 Year
  Sex: Female

DRUGS (1)
  1. OCREVUS [Suspect]
     Active Substance: OCRELIZUMAB
     Indication: RELAPSING MULTIPLE SCLEROSIS
     Dosage: NEXT DATES OF ADMINISTRATION:  10/SEP/2018, 11/MAR/2019, 11/SEP/2019?ONGOING:  YES
     Route: 065
     Dates: start: 20180308

REACTIONS (3)
  - Herpes zoster [Recovered/Resolved]
  - Balance disorder [Recovered/Resolved]
  - Viral infection [Recovered/Resolved]

NARRATIVE: CASE EVENT DATE: 202001
